FAERS Safety Report 20809244 (Version 1)
Quarter: 2022Q2

REPORT INFORMATION
  Report Type: Spontaneous
  Country: US (occurrence: None)
  Receive Date: 20220509
  Receipt Date: 20220509
  Transmission Date: 20220721
  Serious: Yes (unspecified)
  Sender: FDA-Public Use
  Company Number: None

PATIENT
  Age: 50 Year
  Sex: Male

DRUGS (1)
  1. BEBTELOVIMAB [Suspect]
     Active Substance: BEBTELOVIMAB

REACTIONS (5)
  - Pallor [None]
  - Hyperhidrosis [None]
  - Dizziness [None]
  - Nausea [None]
  - Feeling hot [None]

NARRATIVE: CASE EVENT DATE: 20220506
